FAERS Safety Report 21936138 (Version 4)
Quarter: 2023Q1

REPORT INFORMATION
  Report Type: Spontaneous
  Country: US (occurrence: US)
  Receive Date: 20230201
  Receipt Date: 20230314
  Transmission Date: 20230418
  Serious: Yes (Other)
  Sender: FDA-Public Use
  Company Number: US-BAYER-2023P007552

PATIENT
  Age: 30 Year
  Sex: Male

DRUGS (4)
  1. JIVI [Suspect]
     Active Substance: DAMOCTOCOG ALFA PEGOL
     Dosage: 4100 IU, PRN
     Route: 042
  2. JIVI [Suspect]
     Active Substance: DAMOCTOCOG ALFA PEGOL
     Dosage: 1 DF, TO TREAT BLEED
     Dates: start: 202301, end: 202301
  3. JIVI [Suspect]
     Active Substance: DAMOCTOCOG ALFA PEGOL
     Dosage: 1 DF, TO TREAT BLEED
     Dates: start: 202302, end: 202302
  4. JIVI [Suspect]
     Active Substance: DAMOCTOCOG ALFA PEGOL
     Dosage: 2 DF, FOR THE BLEED TREATMENT

REACTIONS (7)
  - Limb injury [None]
  - Haemorrhage [Recovered/Resolved]
  - Limb injury [None]
  - Haemorrhage [Recovered/Resolved]
  - Haemorrhage [None]
  - Raynaud^s phenomenon [None]
  - Skin injury [None]

NARRATIVE: CASE EVENT DATE: 20230128
